FAERS Safety Report 16805457 (Version 3)
Quarter: 2019Q4

REPORT INFORMATION
  Report Type: Report from Study
  Country: CA (occurrence: CA)
  Receive Date: 20190913
  Receipt Date: 20191031
  Transmission Date: 20200122
  Serious: Yes (Hospitalization, Other)
  Sender: FDA-Public Use
  Company Number: CA-B.I. PHARMACEUTICALS,INC./RIDGEFIELD-2016-BI-066899

PATIENT
  Age: 83 Year
  Sex: Female

DRUGS (3)
  1. OFEV [Suspect]
     Active Substance: NINTEDANIB
     Indication: IDIOPATHIC PULMONARY FIBROSIS
     Route: 048
     Dates: start: 20161006
  2. LOPERAMIDE [Suspect]
     Active Substance: LOPERAMIDE
     Indication: PRODUCT USED FOR UNKNOWN INDICATION
     Dosage: TAKEN PRN
     Route: 065
  3. OFEV [Suspect]
     Active Substance: NINTEDANIB
     Route: 048
     Dates: start: 20170330

REACTIONS (31)
  - Fungal infection [Not Recovered/Not Resolved]
  - Tooth infection [Not Recovered/Not Resolved]
  - Fatigue [Not Recovered/Not Resolved]
  - Abdominal pain upper [Not Recovered/Not Resolved]
  - Nausea [Recovered/Resolved]
  - Nausea [Not Recovered/Not Resolved]
  - Cystitis [Recovered/Resolved]
  - Malaise [Not Recovered/Not Resolved]
  - Constipation [Not Recovered/Not Resolved]
  - Feeling abnormal [Not Recovered/Not Resolved]
  - Urinary tract infection [Recovered/Resolved]
  - Abdominal pain [Not Recovered/Not Resolved]
  - Decreased appetite [Not Recovered/Not Resolved]
  - Pneumothorax [Unknown]
  - Vomiting [Recovered/Resolved]
  - Oxygen saturation decreased [Not Recovered/Not Resolved]
  - Diarrhoea [Not Recovered/Not Resolved]
  - Flatulence [Not Recovered/Not Resolved]
  - Dyspepsia [Unknown]
  - Thoracic operation [Recovered/Resolved]
  - Pulmonary oedema [Unknown]
  - Feeling abnormal [Not Recovered/Not Resolved]
  - Dyspepsia [Not Recovered/Not Resolved]
  - Diarrhoea [Not Recovered/Not Resolved]
  - Food poisoning [Recovered/Resolved]
  - Trigeminal neuralgia [Not Recovered/Not Resolved]
  - Cough [Not Recovered/Not Resolved]
  - Abdominal distension [Unknown]
  - Asthenia [Not Recovered/Not Resolved]
  - Localised infection [Recovered/Resolved]
  - Dyspnoea [Not Recovered/Not Resolved]

NARRATIVE: CASE EVENT DATE: 20161006
